FAERS Safety Report 11150234 (Version 1)
Quarter: 2015Q2

REPORT INFORMATION
  Report Type: Spontaneous
  Country: DE (occurrence: DE)
  Receive Date: 20150530
  Receipt Date: 20150530
  Transmission Date: 20150821
  Serious: Yes (Death, Congenital Anomaly, Other)
  Sender: FDA-Public Use
  Company Number: DE-AUROBINDO-AUR-APL-2015-04588

PATIENT
  Sex: Female
  Weight: .94 kg

DRUGS (5)
  1. IMAP [Suspect]
     Active Substance: FLUSPIRILENE
     Indication: DEPRESSION
     Dosage: UNK
     Route: 064
     Dates: start: 20140417, end: 20141017
  2. MAXIM                              /01257001/ [Concomitant]
     Indication: ORAL CONTRACEPTION
     Dosage: 0.03 MG/DAY / 2 MG/DAY
     Route: 064
     Dates: start: 20140417, end: 20140418
  3. AMITRIPTYLIN [Suspect]
     Active Substance: AMITRIPTYLINE
     Indication: DEPRESSION
     Dosage: 75 MG, ONCE A DAY
     Route: 064
     Dates: start: 20140417, end: 20141017
  4. FLUOXETINE [Suspect]
     Active Substance: FLUOXETINE\FLUOXETINE HYDROCHLORIDE
     Indication: ANXIETY DISORDER
     Dosage: 20 MG, ONCE A DAY
     Route: 064
     Dates: start: 20140417, end: 20141017
  5. FOLIO FORTE [Concomitant]
     Active Substance: FOLIC ACID\VITAMINS
     Indication: PROPHYLAXIS OF NEURAL TUBE DEFECT
     Dosage: 0.8 MG, ONCE A DAY
     Route: 064
     Dates: start: 20140605, end: 20141017

REACTIONS (7)
  - Lordosis [Unknown]
  - Pyelocaliectasis [Unknown]
  - Talipes [Unknown]
  - Foetal exposure during pregnancy [Unknown]
  - Death [Fatal]
  - Ventricular septal defect [Unknown]
  - Polydactyly [Unknown]
